FAERS Safety Report 7177205-2 (Version None)
Quarter: 2010Q4

REPORT INFORMATION
  Report Type: 
  Country: None (occurrence: None)
  Receive Date: 20101207
  Receipt Date: 20101123
  Transmission Date: 20110411
  Serious: Yes (Other)
  Sender: FDA-Public Use
  Company Number: PR-001408

PATIENT
  Sex: Female
  Weight: 81.6475 kg

DRUGS (3)
  1. KUVAN [Suspect]
     Indication: PHENYLKETONURIA
     Dosage: 1600 MG QD, ORAL, 800 MG QD, ORAL
     Route: 048
     Dates: start: 20101001, end: 20101028
  2. KUVAN [Suspect]
     Indication: PHENYLKETONURIA
     Dosage: 1600 MG QD, ORAL, 800 MG QD, ORAL
     Route: 048
     Dates: start: 20101101, end: 20101113
  3. NUTRIENTS WITHOUT PHENYLALANINE [Concomitant]

REACTIONS (4)
  - ABNORMAL BEHAVIOUR [None]
  - ANGER [None]
  - CONVULSION [None]
  - SCREAMING [None]
